FAERS Safety Report 11216388 (Version 3)
Quarter: 2015Q3

REPORT INFORMATION
  Report Type: Spontaneous
  Country: US (occurrence: US)
  Receive Date: 20150624
  Receipt Date: 20150817
  Transmission Date: 20151125
  Serious: Yes (Hospitalization, Other)
  Sender: FDA-Public Use
  Company Number: US-GLAXOSMITHKLINE-US2015GSK089126

PATIENT
  Sex: Female

DRUGS (1)
  1. REQUIP [Suspect]
     Active Substance: ROPINIROLE HYDROCHLORIDE
     Indication: RESTLESS LEGS SYNDROME
     Dosage: 4 MG, U

REACTIONS (6)
  - Loss of consciousness [Unknown]
  - Headache [Recovered/Resolved]
  - Fall [Unknown]
  - Head injury [Unknown]
  - Laceration [Unknown]
  - Rotator cuff syndrome [Unknown]
